FAERS Safety Report 5884553-2 (Version None)
Quarter: 2008Q3

REPORT INFORMATION
  Report Type: 
  Country: None (occurrence: None)
  Receive Date: 20080916
  Receipt Date: 20080909
  Transmission Date: 20090109
  Serious: Yes (Hospitalization)
  Sender: FDA-Public Use
  Company Number: PHHY2008AU20055

PATIENT
  Sex: Male

DRUGS (1)
  1. FAMVIR [Suspect]
     Indication: HERPES ZOSTER
     Dosage: 250 MG, TID
     Route: 048
     Dates: start: 20080829, end: 20080901

REACTIONS (4)
  - OROPHARYNGEAL BLISTERING [None]
  - PAIN [None]
  - SKIN LESION [None]
  - VOMITING [None]
